FAERS Safety Report 23658142 (Version 1)
Quarter: 2024Q1

REPORT INFORMATION
  Report Type: Spontaneous
  Country: US (occurrence: None)
  Receive Date: 20240320
  Receipt Date: 20240320
  Transmission Date: 20240409
  Serious: No
  Sender: FDA-Public Use
  Company Number: None

PATIENT
  Age: 28 Year
  Sex: Female
  Weight: 54.3 kg

DRUGS (1)
  1. SYMDEKO [Suspect]
     Active Substance: IVACAFTOR\TEZACAFTOR
     Dosage: TWICE A DAY ORAL
     Route: 048

REACTIONS (2)
  - Muscular weakness [None]
  - Musculoskeletal stiffness [None]

NARRATIVE: CASE EVENT DATE: 20240313
